FAERS Safety Report 6018179-7 (Version None)
Quarter: 2008Q4

REPORT INFORMATION
  Report Type: 
  Country: None (occurrence: None)
  Receive Date: 20081223
  Receipt Date: 20081215
  Transmission Date: 20090506
  Serious: Yes (Other)
  Sender: FDA-Public Use
  Company Number: PHEH2008US11082

PATIENT
  Sex: Female

DRUGS (2)
  1. GLEEVEC [Suspect]
     Indication: LEUKAEMIA
     Dosage: 400 MG, QD
     Dates: start: 20070101
  2. ALDARA [Concomitant]
     Indication: SKIN CANCER

REACTIONS (3)
  - BIOPSY [None]
  - SKIN CANCER [None]
  - SURGERY [None]
